FAERS Safety Report 5492255-X (Version None)
Quarter: 2007Q4

REPORT INFORMATION
  Report Type: 
  Country: None (occurrence: None)
  Receive Date: 20071015
  Receipt Date: 20070628
  Transmission Date: 20080405
  Serious: Yes (Other)
  Sender: FDA-Public Use
  Company Number: HQWYE853629JUN07

PATIENT
  Age: 54 Year
  Sex: Female

DRUGS (14)
  1. RAPAMUNE [Suspect]
     Indication: PROPHYLAXIS AGAINST TRANSPLANT REJECTION
     Dates: start: 20040101
  2. GENGRAF [Concomitant]
  3. CELLCEPT [Concomitant]
  4. PREDNISONE [Concomitant]
  5. ASPIRIN [Concomitant]
  6. PEPCID [Concomitant]
  7. DILTIAZEM [Concomitant]
  8. NYSTATIN [Concomitant]
  9. DAPSONE [Concomitant]
  10. SYNTHROID [Concomitant]
  11. ROCALTROL [Concomitant]
  12. BONIVA (IBANDRONATE SODIUM) [Concomitant]
  13. ZOCOR [Concomitant]
  14. PRENAVITE (ASCORBIC ACID/CALCIUM CARBONATE/ERGOCALCIFEROL/FERROUS FUMA [Concomitant]

REACTIONS (1)
  - PNEUMONITIS [None]
